FAERS Safety Report 13909846 (Version 1)
Quarter: 2017Q3

REPORT INFORMATION
  Report Type: Spontaneous
  Country: US (occurrence: US)
  Receive Date: 20170828
  Receipt Date: 20170828
  Transmission Date: 20171127
  Serious: No
  Sender: FDA-Public Use
  Company Number: US-APOTEX-2017AP016444

PATIENT
  Age: 63 Year
  Sex: Male

DRUGS (1)
  1. IMATINIB MESYLATE TABLETS [Suspect]
     Active Substance: IMATINIB MESYLATE
     Indication: DESMOID TUMOUR
     Dosage: 300-400 MG, DAILY
     Route: 065

REACTIONS (4)
  - Dermatitis [Unknown]
  - Toxicity to various agents [Unknown]
  - Dysgeusia [Unknown]
  - Nausea [Unknown]
